FAERS Safety Report 5563635-9 (Version None)
Quarter: 2007Q4

REPORT INFORMATION
  Report Type: 
  Country: None (occurrence: None)
  Receive Date: 20071217
  Receipt Date: 20071206
  Transmission Date: 20080405
  Serious: Yes (Hospitalization)
  Sender: FDA-Public Use
  Company Number: US-JNJFOC-20071202587

PATIENT
  Sex: Male
  Weight: 99.79 kg

DRUGS (3)
  1. TOPAMAX [Suspect]
     Indication: DEPRESSION
     Route: 048
  2. NOVOLOG [Concomitant]
     Indication: DIABETES MELLITUS
     Dosage: 70/30
     Route: 058
  3. COREG [Concomitant]
     Indication: CARDIAC DISORDER

REACTIONS (3)
  - CARDIAC DISORDER [None]
  - INCOHERENT [None]
  - MEMORY IMPAIRMENT [None]
